FAERS Safety Report 11244549 (Version 1)
Quarter: 2015Q3

REPORT INFORMATION
  Report Type: Spontaneous
  Country: CN (occurrence: CN)
  Receive Date: 20150707
  Receipt Date: 20150707
  Transmission Date: 20151125
  Serious: Yes (Other)
  Sender: FDA-Public Use
  Company Number: CN-PFIZER INC-2015224956

PATIENT
  Age: 3 Year
  Sex: Male
  Weight: 13 kg

DRUGS (6)
  1. SOLU-MEDROL [Suspect]
     Active Substance: METHYLPREDNISOLONE SODIUM SUCCINATE
     Indication: INFECTION
     Dosage: 20 MG, 2X/DAY
     Route: 041
     Dates: start: 20150225, end: 20150301
  2. CREATINE PHOSPHATE SODIUM [Concomitant]
     Active Substance: CREATINE
     Indication: NUTRITIONAL SUPPLEMENTATION
     Dosage: 0.5 G, 1X/DAY
     Route: 041
     Dates: start: 20150223, end: 20150305
  3. VANCOCIN [Concomitant]
     Active Substance: VANCOMYCIN HYDROCHLORIDE
     Indication: INFECTION
     Dosage: 170 MG, 3X/DAY
     Route: 041
     Dates: start: 20150224, end: 20150305
  4. GLUCOSE [Concomitant]
     Active Substance: DEXTROSE
     Indication: MEDICATION DILUTION
     Dosage: 10 ML, 1X/DAY
     Route: 041
     Dates: start: 20150225, end: 20150301
  5. MUCOSOLVAN [Concomitant]
     Active Substance: AMBROXOL\CLENBUTEROL
     Indication: INCREASED VISCOSITY OF BRONCHIAL SECRETION
     Dosage: 1 ML, 2X/DAY
     Route: 041
     Dates: start: 20150223, end: 20150305
  6. SULPERAZON [Concomitant]
     Active Substance: CEFOPERAZONE SODIUM\SULBACTAM SODIUM
     Indication: INFECTION
     Dosage: 0.7 G, 3X/DAY
     Route: 041
     Dates: start: 20150223, end: 20150305

REACTIONS (1)
  - Platelet count increased [Recovering/Resolving]

NARRATIVE: CASE EVENT DATE: 20150303
